FAERS Safety Report 17903748 (Version 1)
Quarter: 2020Q2

REPORT INFORMATION
  Report Type: Spontaneous
  Country: LV (occurrence: LV)
  Receive Date: 20200617
  Receipt Date: 20200617
  Transmission Date: 20200714
  Serious: Yes (Life-Threatening, Hospitalization, Other)
  Sender: FDA-Public Use
  Company Number: LV-ACCORD-185227

PATIENT
  Age: 47 Year
  Sex: Female

DRUGS (2)
  1. FLUOROURACIL. [Suspect]
     Active Substance: FLUOROURACIL
     Indication: ANAL CANCER
     Dosage: 1-4 DAY
  2. CISPLATIN. [Suspect]
     Active Substance: CISPLATIN
     Indication: ANAL CANCER

REACTIONS (9)
  - Hypoalbuminaemia [Unknown]
  - Anaemia [Recovered/Resolved]
  - Hypocalcaemia [Recovered/Resolved]
  - Posterior reversible encephalopathy syndrome [Recovered/Resolved]
  - Diarrhoea [Recovered/Resolved]
  - Febrile neutropenia [Recovered/Resolved]
  - Thrombocytopenia [Recovered/Resolved]
  - Off label use [Unknown]
  - Hypokalaemia [Recovered/Resolved]
